FAERS Safety Report 9020335 (Version 1)
Quarter: 2013Q1

REPORT INFORMATION
  Report Type: Spontaneous
  Country: US (occurrence: US)
  Receive Date: 20130119
  Receipt Date: 20130119
  Transmission Date: 20140127
  Serious: No
  Sender: FDA-Public Use
  Company Number: US-ALLERGAN-1208713US

PATIENT
  Age: 50 None
  Sex: Female
  Weight: 66.67 kg

DRUGS (9)
  1. BOTOX? [Suspect]
     Indication: MUSCLE SPASTICITY
     Dosage: 800 UNITS, SINGLE
     Route: 030
     Dates: start: 20120119, end: 20120119
  2. BOTOX? [Suspect]
     Indication: MUSCLE SPASTICITY
  3. LISINOPRIL [Concomitant]
     Indication: HYPERTENSION
     Dosage: 20 MG, QD
     Route: 048
  4. CALCIUM WITH VITAMIN D [Concomitant]
     Indication: MINERAL SUPPLEMENTATION
  5. LEVOTHYROXINE [Concomitant]
     Indication: THYROID HORMONE REPLACEMENT THERAPY
     Dosage: 0.075 MG, QD
     Route: 048
  6. CRESTOR [Concomitant]
     Indication: LIPIDS INCREASED
     Dosage: 5 MG, QD
  7. HYDROCHLOROTHIAZIDE [Concomitant]
     Indication: HYPERTENSION
     Dosage: 25 MG, QD
     Route: 048
  8. POTASSIUM [Concomitant]
     Indication: ELECTROLYTE SUBSTITUTION THERAPY
     Dosage: 20 MEQ, QD
     Route: 048
  9. ASPIRIN [Concomitant]
     Indication: CEREBROVASCULAR ACCIDENT PROPHYLAXIS
     Dosage: 81 MG, QD
     Route: 048

REACTIONS (5)
  - Rhinorrhoea [Recovered/Resolved]
  - Eyelid oedema [Recovered/Resolved]
  - Nasal inflammation [Recovered/Resolved]
  - Eyelid ptosis [Recovered/Resolved]
  - Dysarthria [Recovered/Resolved]
